FAERS Safety Report 4359423-1 (Version None)
Quarter: 2004Q2

REPORT INFORMATION
  Report Type: 
  Country: None (occurrence: None)
  Receive Date: 20040518
  Receipt Date: 20040506
  Transmission Date: 20050107
  Serious: Yes (Hospitalization, Other)
  Sender: FDA-Public Use
  Company Number: DE-JNJFOC-20040501520

PATIENT
  Age: 11 Year
  Sex: Male

DRUGS (1)
  1. CONCERTA [Suspect]
     Route: 049
     Dates: end: 20040505

REACTIONS (3)
  - HALLUCINATIONS, MIXED [None]
  - SCHIZOAFFECTIVE DISORDER [None]
  - THINKING ABNORMAL [None]
